FAERS Safety Report 16330420 (Version 5)
Quarter: 2025Q4

REPORT INFORMATION
  Report Type: Spontaneous
  Country: EU (occurrence: EU)
  Receive Date: 20190520
  Receipt Date: 20251230
  Transmission Date: 20260118
  Serious: Yes (Death, Hospitalization)
  Sender: ROCHE
  Company Number: EU-ROCHE-2318020

PATIENT
  Age: 18 Year
  Sex: Female
  Weight: 91.00 kg

DRUGS (6)
  1. CELLCEPT [Suspect]
     Active Substance: MYCOPHENOLATE MOFETIL
     Indication: Prophylaxis against transplant rejection
     Dosage: UNK UNK, UNKNOWN FREQ.
  2. PROGRAF [Suspect]
     Active Substance: TACROLIMUS
     Indication: Heart transplant
     Dosage: 1.5 MG IN MORNING AND 1 MG IN EVENING
     Route: 048
     Dates: start: 20110101
  3. PROGRAF [Suspect]
     Active Substance: TACROLIMUS
     Dosage: TRIPLE DOSE, UNKNOWN FREQUENCY
  4. METOPROLOL TARTRATE [Concomitant]
     Active Substance: METOPROLOL TARTRATE
     Indication: Hypertension
     Dosage: UNK UNK, UNKNOWN FREQ.
  5. NIKORAN [Concomitant]
     Indication: Product used for unknown indication
     Dosage: UNK UNK, UNKNOWN FREQ.
  6. AMLODIPINE BESYLATE\LISINOPRIL [Concomitant]
     Active Substance: AMLODIPINE BESYLATE\LISINOPRIL
     Indication: Hypertension
     Dosage: UNK UNK, UNKNOWN FREQ.

REACTIONS (10)
  - Heart transplant rejection [Fatal]
  - Cough [Unknown]
  - Cardiac failure [Fatal]
  - Circulatory collapse [Fatal]
  - Immunosuppressant drug level decreased [Recovered/Resolved]
  - Cardiopulmonary failure [Fatal]
  - Treatment noncompliance [Unknown]
  - Abortion missed [Unknown]
  - Intentional product misuse [Unknown]
  - Maternal exposure timing unspecified [Unknown]

NARRATIVE: CASE EVENT DATE: 20151201
